FAERS Safety Report 8237607-X (Version None)
Quarter: 2012Q1

REPORT INFORMATION
  Report Type: 
  Country: None (occurrence: None)
  Receive Date: 20120327
  Receipt Date: 20120319
  Transmission Date: 20120608
  Serious: Yes (Hospitalization)
  Sender: FDA-Public Use
  Company Number: GR-UCBSA-053745

PATIENT
  Age: 4 Year
  Sex: Male

DRUGS (2)
  1. LEVOCETIRIZINE DIHYDROCHLORIDE [Suspect]
     Dosage: 2.5 ML, TOTAL DAILY DOSE - 50 DROPS
     Route: 048
     Dates: start: 20120313, end: 20120315
  2. PULMICORT [Concomitant]

REACTIONS (4)
  - ACCIDENTAL OVERDOSE [None]
  - PALPITATIONS [None]
  - HEADACHE [None]
  - NASOPHARYNGITIS [None]
